FAERS Safety Report 7458824-2 (Version None)
Quarter: 2011Q2

REPORT INFORMATION
  Report Type: 
  Country: None (occurrence: None)
  Receive Date: 20110504
  Receipt Date: 20110429
  Transmission Date: 20111010
  Serious: Yes (Hospitalization, Other)
  Sender: FDA-Public Use
  Company Number: BR-ROCHE-768315

PATIENT
  Sex: Female
  Weight: 64 kg

DRUGS (1)
  1. TOCILIZUMAB [Suspect]
     Route: 042
     Dates: start: 20100325

REACTIONS (4)
  - DEPRESSION [None]
  - WEIGHT DECREASED [None]
  - URINARY TRACT INFECTION [None]
  - CARDIOMEGALY [None]
